FAERS Safety Report 5430545-7 (Version None)
Quarter: 2007Q3

REPORT INFORMATION
  Report Type: 
  Country: None (occurrence: None)
  Receive Date: 20070830
  Receipt Date: 20070824
  Transmission Date: 20080115
  Serious: Yes (Other)
  Sender: FDA-Public Use
  Company Number: JP-SP-2007-02928

PATIENT
  Age: 67 Year
  Sex: Male

DRUGS (3)
  1. IMMUCYST [Suspect]
     Indication: URETERIC CANCER
     Route: 043
     Dates: start: 20070515, end: 20070605
  2. TAMSULOSIN HCL [Concomitant]
     Route: 048
     Dates: start: 20070320
  3. EVIPROSTAT [Concomitant]
     Dates: start: 20070320

REACTIONS (2)
  - BOVINE TUBERCULOSIS [None]
  - PYREXIA [None]
